FAERS Safety Report 6604802-2 (Version None)
Quarter: 2010Q1

REPORT INFORMATION
  Report Type: 
  Country: None (occurrence: None)
  Receive Date: 20100226
  Receipt Date: 20100223
  Transmission Date: 20100710
  Serious: Yes (Life-Threatening)
  Sender: FDA-Public Use
  Company Number: BR-ROCHE-687176

PATIENT
  Sex: Male

DRUGS (1)
  1. METHOXY POLYETHYLENE GLYCOL-EPOETIN BETA [Suspect]
     Dosage: FROM: PFS, LAST DOSE PRIOR TO SAE ON 10 NOVEMBER 2009. 2
     Route: 058
     Dates: start: 20090723

REACTIONS (1)
  - COLON CANCER [None]
